FAERS Safety Report 11651710 (Version 1)
Quarter: 2015Q4

REPORT INFORMATION
  Report Type: Spontaneous
  Country: US (occurrence: None)
  Receive Date: 20151021
  Receipt Date: 20151021
  Transmission Date: 20160304
  Serious: Yes (Other)
  Sender: FDA-Public Use
  Company Number: None

PATIENT
  Sex: Male
  Weight: 73.48 kg

DRUGS (6)
  1. SPIRIVEA [Concomitant]
  2. LEVITIRACETAM [Concomitant]
     Active Substance: LEVETIRACETAM
  3. ALBUTEROL. [Concomitant]
     Active Substance: ALBUTEROL
  4. ASTHMANEX [Concomitant]
  5. LEVETIRACETAM. [Suspect]
     Active Substance: LEVETIRACETAM
     Indication: SEIZURE
     Route: 048
  6. LISINOPRIL. [Concomitant]
     Active Substance: LISINOPRIL

REACTIONS (6)
  - Fatigue [None]
  - Irritability [None]
  - Depressed mood [None]
  - Restlessness [None]
  - Anger [None]
  - Somnolence [None]
